FAERS Safety Report 7294788-2 (Version None)
Quarter: 2011Q1

REPORT INFORMATION
  Report Type: 
  Country: None (occurrence: None)
  Receive Date: 20110203
  Receipt Date: 20110125
  Transmission Date: 20110831
  Serious: Yes (Other)
  Sender: FDA-Public Use
  Company Number: 2010SP041226

PATIENT
  Age: 43 Year
  Sex: Female

DRUGS (2)
  1. CONTRACEPTIVE [Concomitant]
  2. NUVARING [Suspect]
     Indication: CONTRACEPTION
     Dosage: VAG
     Route: 067
     Dates: start: 20090701

REACTIONS (1)
  - CERVICAL DYSPLASIA [None]
